FAERS Safety Report 13615703 (Version 1)
Quarter: 2017Q2

REPORT INFORMATION
  Report Type: Spontaneous
  Country: US (occurrence: US)
  Receive Date: 20170605
  Receipt Date: 20170605
  Transmission Date: 20170830
  Serious: No
  Sender: FDA-Public Use
  Company Number: None

PATIENT
  Age: 68 Year
  Sex: Male
  Weight: 76.7 kg

DRUGS (4)
  1. LISINOPRIL. [Suspect]
     Active Substance: LISINOPRIL
     Indication: CHRONIC KIDNEY DISEASE
     Dosage: MG EVERY DAY PO
     Route: 048
     Dates: start: 20140915, end: 20150901
  2. LISINOPRIL. [Suspect]
     Active Substance: LISINOPRIL
     Indication: MITRAL VALVE REPAIR
     Dosage: MG EVERY DAY PO
     Route: 048
     Dates: start: 20140915, end: 20150901
  3. LISINOPRIL. [Suspect]
     Active Substance: LISINOPRIL
     Indication: HYPERTENSION
     Dosage: MG EVERY DAY PO
     Route: 048
     Dates: start: 20140915, end: 20150901
  4. LISINOPRIL. [Suspect]
     Active Substance: LISINOPRIL
     Indication: ATRIAL FIBRILLATION
     Dosage: MG EVERY DAY PO
     Route: 048
     Dates: start: 20140915, end: 20150901

REACTIONS (1)
  - Angioedema [None]

NARRATIVE: CASE EVENT DATE: 20150901
